FAERS Safety Report 19074552 (Version 7)
Quarter: 2025Q3

REPORT INFORMATION
  Report Type: Report from Study
  Country: US (occurrence: US)
  Receive Date: 20210330
  Receipt Date: 20250918
  Transmission Date: 20251021
  Serious: Yes (Other)
  Sender: TAKEDA
  Company Number: US-SHIRE-US202000324

PATIENT
  Age: 73 Year
  Sex: Female

DRUGS (11)
  1. HUMAN IMMUNOGLOBULIN G [Suspect]
     Active Substance: HUMAN IMMUNOGLOBULIN G
     Indication: Primary immunodeficiency syndrome
  2. HUMAN IMMUNOGLOBULIN G [Suspect]
     Active Substance: HUMAN IMMUNOGLOBULIN G
     Indication: Immunodeficiency common variable
     Dosage: 30 GRAM, Q4WEEKS
     Dates: start: 20060410
  3. HUMAN IMMUNOGLOBULIN G [Suspect]
     Active Substance: HUMAN IMMUNOGLOBULIN G
  4. PANTOPRAZOLE [Concomitant]
     Active Substance: PANTOPRAZOLE
  5. ZYRTEC [Concomitant]
     Active Substance: CETIRIZINE HYDROCHLORIDE
  6. HYDROCHLOROTHIAZIDE [Concomitant]
     Active Substance: HYDROCHLOROTHIAZIDE
  7. QVAR [Concomitant]
     Active Substance: BECLOMETHASONE DIPROPIONATE
  8. MOMETASONE [Concomitant]
     Active Substance: MOMETASONE
  9. METOPROLOL [Concomitant]
     Active Substance: METOPROLOL
  10. SINGULAIR [Concomitant]
     Active Substance: MONTELUKAST SODIUM
  11. ZOCOR [Concomitant]
     Active Substance: SIMVASTATIN

REACTIONS (13)
  - Diverticulitis [Unknown]
  - Bronchitis [Unknown]
  - Suspected COVID-19 [Unknown]
  - Illness [Unknown]
  - Respiratory tract infection viral [Unknown]
  - Nasopharyngitis [Recovering/Resolving]
  - Arthropathy [Unknown]
  - Infection [Recovered/Resolved]
  - Fatigue [Unknown]
  - Chills [Unknown]
  - Insurance issue [Unknown]
  - Gait disturbance [Unknown]
  - Arthralgia [Unknown]

NARRATIVE: CASE EVENT DATE: 20191001
